FAERS Safety Report 8094089-9 (Version None)
Quarter: 2012Q1

REPORT INFORMATION
  Report Type: 
  Country: None (occurrence: None)
  Receive Date: 20120131
  Receipt Date: 20120123
  Transmission Date: 20120608
  Serious: Yes (Other)
  Sender: FDA-Public Use
  Company Number: BE-ASTELLAS-2012US000649

PATIENT
  Age: 58 Year
  Sex: Male
  Weight: 76 kg

DRUGS (1)
  1. TARCEVA [Suspect]
     Indication: LUNG NEOPLASM MALIGNANT
     Dosage: 150 MG, UID/QD
     Route: 048
     Dates: start: 20110830

REACTIONS (1)
  - MUSCLE SPASMS [None]
